FAERS Safety Report 23986861 (Version 1)
Quarter: 2024Q2

REPORT INFORMATION
  Report Type: Spontaneous
  Country: US (occurrence: US)
  Receive Date: 20240618
  Receipt Date: 20240618
  Transmission Date: 20240716
  Serious: Yes (Other)
  Sender: FDA-Public Use
  Company Number: US-PFIZER INC-202400193889

PATIENT
  Age: 47 Year
  Sex: Female

DRUGS (4)
  1. LIDOCAINE HYDROCHLORIDE [Suspect]
     Active Substance: LIDOCAINE HYDROCHLORIDE
     Indication: Local anaesthesia
     Dosage: UNK
  2. MEROPENEM [Concomitant]
     Active Substance: MEROPENEM
     Indication: Escherichia infection
     Dosage: UNK
  3. LACTULOSE [Concomitant]
     Active Substance: LACTULOSE
     Dosage: UNK
  4. CEFTRIAXONE [Concomitant]
     Active Substance: CEFTRIAXONE\CEFTRIAXONE SODIUM
     Dosage: UNK

REACTIONS (1)
  - Injection site haemorrhage [Unknown]
